FAERS Safety Report 6013268-5 (Version None)
Quarter: 2008Q4

REPORT INFORMATION
  Report Type: 
  Country: None (occurrence: None)
  Receive Date: 20081219
  Receipt Date: 20081215
  Transmission Date: 20090506
  Serious: Yes (Hospitalization)
  Sender: FDA-Public Use
  Company Number: FR-ASTRAZENECA-2008CG01851

PATIENT
  Age: 21228 Day
  Sex: Female

DRUGS (16)
  1. NEXIUM [Suspect]
     Indication: HYPERTHERMIA
     Route: 048
     Dates: start: 20080801, end: 20080815
  2. NEXIUM [Suspect]
     Indication: CARDIAC FAILURE
     Route: 048
     Dates: start: 20080801, end: 20080815
  3. TAVANIC [Suspect]
     Indication: HYPERTHERMIA
     Dates: start: 20080805, end: 20080815
  4. TAVANIC [Suspect]
     Indication: CARDIAC FAILURE
     Dates: start: 20080805, end: 20080815
  5. COZAAR [Concomitant]
     Indication: HYPERTENSION
     Dates: end: 20080601
  6. LOSARTAN POTASSIUM AND HYDROCHLOROTHIAZIDE [Concomitant]
     Indication: HYPERTENSION
     Dates: start: 20080601, end: 20080701
  7. AMLOD [Concomitant]
     Indication: HYPERTENSION
     Dates: start: 20080712, end: 20080722
  8. EUPRESSYL [Concomitant]
     Indication: HYPERTENSION
  9. HYPERIUM [Concomitant]
     Indication: HYPERTENSION
  10. KARDEGIC [Concomitant]
     Indication: HYPERTHERMIA
     Dates: start: 20080801
  11. KARDEGIC [Concomitant]
     Indication: CARDIAC FAILURE
     Dates: start: 20080801
  12. LASIX [Concomitant]
     Indication: HYPERTHERMIA
     Dates: start: 20080801
  13. LASIX [Concomitant]
     Indication: CARDIAC FAILURE
     Dates: start: 20080801
  14. ATARAX [Concomitant]
  15. IMOVANE [Concomitant]
  16. LEXOMIL [Concomitant]

REACTIONS (2)
  - CHOLESTASIS [None]
  - EOSINOPHILIA [None]
